FAERS Safety Report 6179746-3 (Version None)
Quarter: 2009Q2

REPORT INFORMATION
  Report Type: 
  Country: None (occurrence: None)
  Receive Date: 20090505
  Receipt Date: 20090421
  Transmission Date: 20091009
  Serious: Yes (Hospitalization)
  Sender: FDA-Public Use
  Company Number: BE-GENENTECH-282145

PATIENT
  Sex: Male
  Weight: 68 kg

DRUGS (1)
  1. XOLAIR [Suspect]
     Indication: ASTHMA
     Dosage: UNK
     Dates: start: 20080928

REACTIONS (3)
  - ASPERGILLOSIS [None]
  - ASTHMA [None]
  - BACILLUS INFECTION [None]
